FAERS Safety Report 20013324 (Version 2)
Quarter: 2021Q4

REPORT INFORMATION
  Report Type: Spontaneous
  Country: CH (occurrence: CH)
  Receive Date: 20211029
  Receipt Date: 20211119
  Transmission Date: 20220303
  Serious: Yes (Hospitalization)
  Sender: FDA-Public Use
  Company Number: None

PATIENT
  Age: 72 Year
  Sex: Male
  Weight: 78 kg

DRUGS (3)
  1. KEYTRUDA [Suspect]
     Active Substance: PEMBROLIZUMAB
     Indication: Squamous cell carcinoma of lung
     Dosage: DOSAGE UNKNOWN, CYCLICAL EVERY 3 WEEKS
     Route: 042
     Dates: start: 20210414, end: 20210527
  2. PREDNISONE [Suspect]
     Active Substance: PREDNISONE
     Indication: Lung disorder
     Dosage: 60 MG 1X/DAY IN A TAPERING REGIMEN
     Route: 048
     Dates: start: 20210611, end: 20210813
  3. SOLU-MEDROL [Suspect]
     Active Substance: METHYLPREDNISOLONE SODIUM SUCCINATE
     Indication: Lung disorder
     Dosage: 250 MG PER DAY THEN 125 MG PER DAY
     Route: 042
     Dates: start: 20210605, end: 20210610

REACTIONS (2)
  - Pneumonitis [Recovering/Resolving]
  - Pneumocystis jirovecii infection [Recovering/Resolving]

NARRATIVE: CASE EVENT DATE: 20210602
